FAERS Safety Report 6192736-X (Version None)
Quarter: 2009Q2

REPORT INFORMATION
  Report Type: 
  Country: None (occurrence: None)
  Receive Date: 20090518
  Receipt Date: 20070515
  Transmission Date: 20091009
  Serious: Yes (Hospitalization)
  Sender: FDA-Public Use
  Company Number: US-ASTRAZENECA-2006UW24742

PATIENT
  Age: 13206 Day
  Sex: Female
  Weight: 66.2 kg

DRUGS (19)
  1. SEROQUEL [Suspect]
     Indication: SCHIZOPHRENIA
     Route: 048
     Dates: start: 19981201, end: 20021101
  2. SEROQUEL [Suspect]
     Dosage: 300 MG,25-400 MG
     Route: 048
     Dates: start: 19981201, end: 20021030
  3. ZYPREXA [Suspect]
     Route: 065
     Dates: start: 19981001, end: 20020101
  4. GEODON [Concomitant]
     Route: 065
  5. HALDOL [Concomitant]
     Route: 065
  6. GLIPIZIDE [Concomitant]
     Indication: TYPE 2 DIABETES MELLITUS
     Dosage: 5-10 MG
     Route: 048
  7. EFFEXOR [Concomitant]
     Indication: MAJOR DEPRESSION
     Dosage: 37.5-150 MG
     Route: 048
  8. RANITIDINE HYDROCHLORIDE [Concomitant]
     Route: 048
  9. CELEXA [Concomitant]
     Indication: AFFECTIVE DISORDER
     Dosage: 10-20 MG
     Route: 048
  10. CELEXA [Concomitant]
     Indication: ANXIETY
     Dosage: 10-20 MG
     Route: 048
  11. RISPERDAL [Concomitant]
     Dosage: 0.5-6.0 MG
     Route: 048
  12. KLONOPIN [Concomitant]
     Indication: POST-TRAUMATIC STRESS DISORDER
     Dosage: 0.5-3.0 MG
     Route: 048
  13. KLONOPIN [Concomitant]
     Indication: ANXIETY
     Dosage: 0.5-3.0 MG
     Route: 048
  14. KLONOPIN [Concomitant]
     Indication: SLEEP DISORDER
     Dosage: 0.5-3.0 MG
     Route: 048
  15. KLONOPIN [Concomitant]
     Indication: AKATHISIA
     Dosage: 0.5-3.0 MG
     Route: 048
  16. PROZAC [Concomitant]
     Route: 048
  17. ZOLOFT [Concomitant]
     Indication: DEPRESSION
     Dosage: 50-200 MG
     Route: 048
  18. ZOLOFT [Concomitant]
     Indication: SLEEP DISORDER
     Dosage: 50-200 MG
     Route: 048
  19. COGENTIN [Concomitant]
     Indication: ADVERSE DRUG REACTION
     Dosage: 1-3 MG
     Route: 048

REACTIONS (23)
  - ACNE [None]
  - ANHEDONIA [None]
  - BACK PAIN [None]
  - BREAST ENLARGEMENT [None]
  - BREAST MASS [None]
  - BURSITIS [None]
  - CARPAL TUNNEL SYNDROME [None]
  - DEPRESSION [None]
  - DERMATITIS [None]
  - DIABETES MELLITUS [None]
  - FALL [None]
  - FERTILITY INCREASED [None]
  - GASTROOESOPHAGEAL REFLUX DISEASE [None]
  - HAEMORRHOIDS [None]
  - HALLUCINATION, AUDITORY [None]
  - LETHARGY [None]
  - METRORRHAGIA [None]
  - MUSCLE SPASMS [None]
  - ORTHOSTATIC HYPOTENSION [None]
  - POST-TRAUMATIC STRESS DISORDER [None]
  - SCHIZOPHRENIA, PARANOID TYPE [None]
  - UPPER RESPIRATORY TRACT INFECTION [None]
  - URINARY TRACT INFECTION [None]
